FAERS Safety Report 6104707-X (Version None)
Quarter: 2009Q1

REPORT INFORMATION
  Report Type: 
  Country: None (occurrence: None)
  Receive Date: 20090302
  Receipt Date: 20090218
  Transmission Date: 20090719
  Serious: Yes (Death, Hospitalization)
  Sender: FDA-Public Use
  Company Number: 2008AL004456

PATIENT
  Age: 71 Year
  Sex: Male
  Weight: 79.3795 kg

DRUGS (10)
  1. DIGOXIN [Suspect]
     Indication: CARDIAC FAILURE CONGESTIVE
     Dosage: 0.125 MG, DAILY, PO
     Route: 048
  2. PULMACORT INHALER [Concomitant]
  3. LISINOPRIL [Concomitant]
  4. XOPENEX HFA [Concomitant]
  5. XALATAN [Concomitant]
  6. TRUSOP EYE DROPS [Concomitant]
  7. POTASSIUM CHLORIDE [Concomitant]
  8. FOLIC ACID [Concomitant]
  9. LIPITOR [Concomitant]
  10. ZANTAC [Concomitant]

REACTIONS (2)
  - DIZZINESS [None]
  - OVERDOSE [None]
